FAERS Safety Report 4344067-8 (Version None)
Quarter: 2004Q2

REPORT INFORMATION
  Report Type: 
  Country: None (occurrence: None)
  Receive Date: 20040422
  Receipt Date: 20040330
  Transmission Date: 20050107
  Serious: Yes (Other)
  Sender: FDA-Public Use
  Company Number: JP-GLAXOSMITHKLINE-B0329370A

PATIENT
  Age: 45 Year
  Sex: Male
  Weight: 64 kg

DRUGS (14)
  1. ALKERAN [Suspect]
     Indication: MULTIPLE MYELOMA
     Dosage: 150MG PER DAY
     Route: 042
     Dates: start: 20040308, end: 20040309
  2. ISOTONIC SODIUM CHLORIDE SOLUTION [Concomitant]
     Route: 042
     Dates: start: 20040308, end: 20040313
  3. GRANISETRON HYDROCHLORIDE [Concomitant]
     Indication: VOMITING
     Route: 042
     Dates: start: 20040308, end: 20040309
  4. HUMAN INSULIN [Concomitant]
     Indication: DIABETES MELLITUS
     Route: 058
     Dates: start: 20040303
  5. HUMAN HAPTOGLOBIN [Concomitant]
     Dosage: 1000MG PER DAY
     Route: 042
     Dates: start: 20040311, end: 20040311
  6. FREEZE DRIED SULPHONATED HUMAN NORMAL IMMUNOGLOBULIN [Concomitant]
     Dosage: 5G PER DAY
     Route: 042
     Dates: start: 20040312, end: 20040319
  7. HYDROCORTISONE SODIUM SUCCINATE [Concomitant]
     Dosage: 100MG PER DAY
     Route: 042
     Dates: start: 20040311, end: 20040311
  8. LENOGRASTIM [Concomitant]
     Dosage: 250UG PER DAY
     Route: 042
     Dates: start: 20040312, end: 20040325
  9. POLYMYXIN B SULFATE [Concomitant]
     Dosage: 300U PER DAY
     Route: 048
     Dates: start: 20040307, end: 20040325
  10. NYSTATIN [Concomitant]
     Dosage: 3U PER DAY
     Route: 048
     Dates: start: 20040307, end: 20040325
  11. REBAMIPIDE [Concomitant]
     Route: 048
     Dates: start: 20040307, end: 20040325
  12. AMPHOTERICIN B [Concomitant]
     Dosage: 12ML PER DAY
     Route: 048
     Dates: start: 20040307, end: 20040325
  13. ALLOPURINOL [Concomitant]
     Dosage: 3U PER DAY
     Route: 048
     Dates: start: 20040307, end: 20040312
  14. SOLDEM 3A [Concomitant]
     Dosage: 2000ML PER DAY
     Route: 042
     Dates: start: 20040309, end: 20040313

REACTIONS (3)
  - ATRIAL FIBRILLATION [None]
  - HEART RATE INCREASED [None]
  - PALPITATIONS [None]
